FAERS Safety Report 8770328 (Version 1)
Quarter: 2012Q4

REPORT INFORMATION
  Report Type: 
  Country: US (occurrence: US)
  Receive Date: 20120906
  Receipt Date: 20120906
  Transmission Date: 20130627
  Serious: Yes (Other)
  Sender: FDA-Public Use
  Company Number: US-PFIZER INC-2012217402

PATIENT
  Age: 34 Year
  Sex: Female

DRUGS (4)
  1. OXYCODONE HYDROCHLORIDE [Suspect]
     Dosage: 100 IU/ml, 1x/day
  2. FENTANYL [Suspect]
     Dosage: UNK
  3. ZOLPIDEM TARTRATE [Suspect]
     Dosage: 10 mg, UNK
  4. LORAZEPAM [Suspect]
     Dosage: 1 mg, UNK

REACTIONS (6)
  - Overdose [Recovered/Resolved]
  - Stress cardiomyopathy [Recovered/Resolved]
  - Heart rate increased [None]
  - Unresponsive to stimuli [None]
  - Blood pressure increased [None]
  - Cardiotoxicity [None]
